FAERS Safety Report 6875079-8 (Version None)
Quarter: 2010Q3

REPORT INFORMATION
  Report Type: 
  Country: None (occurrence: None)
  Receive Date: 20100727
  Receipt Date: 20081119
  Transmission Date: 20110219
  Serious: No
  Sender: FDA-Public Use
  Company Number: US-PFIZER INC-2005084545

PATIENT
  Sex: Male
  Weight: 81.65 kg

DRUGS (4)
  1. CELEBREX [Suspect]
     Indication: ARTHRITIS
  2. ALL OTHER THERAPEUTIC PRODUCTS [Concomitant]
  3. COREG [Concomitant]
  4. ULTRAM [Concomitant]

REACTIONS (6)
  - ARTHRITIS [None]
  - BODY HEIGHT DECREASED [None]
  - DRUG INEFFECTIVE [None]
  - LIGHT CHAIN ANALYSIS ABNORMAL [None]
  - NEPHROLITHIASIS [None]
  - WEIGHT DECREASED [None]
